FAERS Safety Report 18920050 (Version 1)
Quarter: 2021Q1

REPORT INFORMATION
  Report Type: Spontaneous
  Country: US (occurrence: US)
  Receive Date: 20210222
  Receipt Date: 20210222
  Transmission Date: 20210420
  Serious: No
  Sender: FDA-Public Use
  Company Number: US-TEVA-2021-US-1880209

PATIENT
  Age: 62 Year
  Sex: Female

DRUGS (1)
  1. FLUOXETINE TEVA [Suspect]
     Active Substance: FLUOXETINE HYDROCHLORIDE
     Indication: DEPRESSION
     Dosage: TAKING FOR 3?4 YEARS
     Route: 065

REACTIONS (4)
  - Insomnia [Unknown]
  - Crying [Unknown]
  - Feeling abnormal [Not Recovered/Not Resolved]
  - Illness [Not Recovered/Not Resolved]
